FAERS Safety Report 20824444 (Version 1)
Quarter: 2022Q2

REPORT INFORMATION
  Report Type: Spontaneous
  Country: US (occurrence: US)
  Receive Date: 20220513
  Receipt Date: 20220513
  Transmission Date: 20220721
  Serious: No
  Sender: FDA-Public Use
  Company Number: US-APOTEX-2022AP006403

PATIENT
  Age: 18 Year
  Sex: Female

DRUGS (17)
  1. OLANZAPINE [Suspect]
     Active Substance: OLANZAPINE
     Indication: Product used for unknown indication
     Dosage: 5 MILLIGRAM, BID
     Route: 065
  2. OLANZAPINE [Suspect]
     Active Substance: OLANZAPINE
     Dosage: 20 MILLIGRAM, QD
     Route: 065
  3. ONDANSETRON [Suspect]
     Active Substance: ONDANSETRON
     Indication: Nausea
     Dosage: 4 MILLIGRAM, BID (AS NEEDED)
     Route: 065
  4. CITALOPRAM [Concomitant]
     Active Substance: CITALOPRAM HYDROBROMIDE
     Indication: Product used for unknown indication
     Dosage: 20 MILLIGRAM, QD
     Route: 065
  5. PERPHENAZINE [Concomitant]
     Active Substance: PERPHENAZINE
     Indication: Psychotic symptom
     Dosage: 16 MILLIGRAM, BID
     Route: 065
  6. PERPHENAZINE [Concomitant]
     Active Substance: PERPHENAZINE
     Dosage: 18 MILLIGRAM, BID
     Route: 065
  7. PERPHENAZINE [Concomitant]
     Active Substance: PERPHENAZINE
     Dosage: 12 MILLIGRAM, BID
     Route: 065
  8. PERPHENAZINE [Concomitant]
     Active Substance: PERPHENAZINE
     Dosage: 2 MILLIGRAM, BID
     Route: 065
  9. LURASIDONE [Concomitant]
     Active Substance: LURASIDONE
     Indication: Product used for unknown indication
     Dosage: 20 MILLIGRAM, Q.H.S.
     Route: 065
  10. LURASIDONE [Concomitant]
     Active Substance: LURASIDONE
     Dosage: 20 MILLIGRAM, BID
     Route: 065
  11. LURASIDONE [Concomitant]
     Active Substance: LURASIDONE
     Dosage: 80 MILLIGRAM, BID
     Route: 065
  12. LAMOTRIGINE [Concomitant]
     Active Substance: LAMOTRIGINE
     Indication: Affect lability
     Dosage: 25 MILLIGRAM
     Route: 065
  13. LAMOTRIGINE [Concomitant]
     Active Substance: LAMOTRIGINE
     Dosage: 50 MILLIGRAM
     Route: 065
  14. LAMOTRIGINE [Concomitant]
     Active Substance: LAMOTRIGINE
     Dosage: 100 MILLIGRAM, QD
     Route: 065
  15. NALTREXONE [Concomitant]
     Active Substance: NALTREXONE
     Indication: Self-injurious ideation
     Dosage: 12.5 MILLIGRAM, QD
     Route: 065
  16. NALTREXONE [Concomitant]
     Active Substance: NALTREXONE
     Dosage: 25 MILLIGRAM, QD
     Route: 065
  17. NALTREXONE [Concomitant]
     Active Substance: NALTREXONE
     Dosage: 50 MILLIGRAM, QD
     Route: 065

REACTIONS (2)
  - Weight increased [Unknown]
  - Therapeutic product effect variable [Unknown]
